FAERS Safety Report 14820511 (Version 2)
Quarter: 2018Q2

REPORT INFORMATION
  Report Type: Report from Study
  Country: US (occurrence: US)
  Receive Date: 20180427
  Receipt Date: 20180503
  Transmission Date: 20180711
  Serious: No
  Sender: FDA-Public Use
  Company Number: PHEH2018US015265

PATIENT
  Age: 34 Year

DRUGS (1)
  1. GILENYA [Suspect]
     Active Substance: FINGOLIMOD HYDROCHLORIDE
     Indication: PRODUCT USED FOR UNKNOWN INDICATION
     Dosage: UNK
     Route: 065
     Dates: start: 20180323

REACTIONS (9)
  - Labile blood pressure [Recovered/Resolved]
  - Nervousness [Unknown]
  - Pain [Unknown]
  - Breast swelling [Unknown]
  - Influenza like illness [Unknown]
  - Bradycardia [Recovered/Resolved]
  - Swelling face [Unknown]
  - Peripheral swelling [Unknown]
  - Swelling [Unknown]

NARRATIVE: CASE EVENT DATE: 20180323
